FAERS Safety Report 20683732 (Version 1)
Quarter: 2022Q2

REPORT INFORMATION
  Report Type: Spontaneous
  Country: PT (occurrence: PT)
  Receive Date: 20220407
  Receipt Date: 20220407
  Transmission Date: 20220721
  Serious: Yes (Other)
  Sender: FDA-Public Use
  Company Number: None

PATIENT
  Age: 84 Year
  Sex: Female

DRUGS (5)
  1. ESCITALOPRAM [Suspect]
     Active Substance: ESCITALOPRAM OXALATE
     Indication: Depression
     Dosage: STRENGTH: 10 MG
     Route: 048
     Dates: start: 202202
  2. Maltofer [Concomitant]
     Route: 048
     Dates: start: 202202
  3. LANSOPRAZOLE [Concomitant]
     Active Substance: LANSOPRAZOLE
     Route: 048
     Dates: start: 202202
  4. FOLIC ACID [Concomitant]
     Active Substance: FOLIC ACID
     Dosage: STRENGTH: 5 MG
     Route: 048
     Dates: start: 202202
  5. PERMADOZE [Concomitant]
     Dosage: STRENGTH: 1 MG
     Route: 048
     Dates: start: 202202

REACTIONS (3)
  - Blood pressure systolic increased [Unknown]
  - Telangiectasia [Unknown]
  - Diarrhoea [Unknown]

NARRATIVE: CASE EVENT DATE: 20220201
